FAERS Safety Report 4592776-8 (Version None)
Quarter: 2005Q1

REPORT INFORMATION
  Report Type: 
  Country: None (occurrence: None)
  Receive Date: 20050228
  Receipt Date: 20050217
  Transmission Date: 20050727
  Serious: Yes (Hospitalization, Other)
  Sender: FDA-Public Use
  Company Number: IE-JNJFOC-20041204127

PATIENT
  Sex: Female
  Weight: 49 kg

DRUGS (2)
  1. RISPERDAL [Suspect]
     Route: 049
  2. CLONIDINE [Concomitant]
     Dosage: 25-25-50 MCG

REACTIONS (1)
  - TRANSIENT ISCHAEMIC ATTACK [None]
